FAERS Safety Report 21477227 (Version 2)
Quarter: 2022Q4

REPORT INFORMATION
  Report Type: Spontaneous
  Country: US (occurrence: None)
  Receive Date: 20221019
  Receipt Date: 20221121
  Transmission Date: 20230112
  Serious: No
  Sender: FDA-Public Use
  Company Number: 2022A329476

PATIENT
  Age: 57 Year
  Sex: Male
  Weight: 113.9 kg

DRUGS (9)
  1. FARXIGA [Suspect]
     Active Substance: DAPAGLIFLOZIN PROPANEDIOL
     Dosage: 10.0MG UNKNOWN
     Route: 048
     Dates: start: 20220406, end: 20220920
  2. SYMBICORT [Suspect]
     Active Substance: BUDESONIDE\FORMOTEROL FUMARATE DIHYDRATE
     Dosage: 2 PUFFS
     Route: 055
  3. LOSARTAN [Concomitant]
     Active Substance: LOSARTAN
  4. TRULICITY [Concomitant]
     Active Substance: DULAGLUTIDE
  5. MAGNESIUM [Concomitant]
     Active Substance: MAGNESIUM
  6. PRAVASTATIN [Concomitant]
     Active Substance: PRAVASTATIN
  7. ATENOLOL [Concomitant]
     Active Substance: ATENOLOL
  8. ALBUTEROL PRN [Concomitant]
  9. METFORMIN HYDROCHLORIDE [Concomitant]
     Active Substance: METFORMIN HYDROCHLORIDE

REACTIONS (5)
  - Drug intolerance [Unknown]
  - Depression [Recovered/Resolved]
  - Insomnia [Recovered/Resolved]
  - Abdominal discomfort [Recovered/Resolved]
  - Dyspepsia [Recovered/Resolved]

NARRATIVE: CASE EVENT DATE: 20220715
